FAERS Safety Report 8387367-7 (Version None)
Quarter: 2012Q2

REPORT INFORMATION
  Report Type: 
  Country: None (occurrence: None)
  Receive Date: 20120525
  Receipt Date: 20120517
  Transmission Date: 20120825
  Serious: No
  Sender: FDA-Public Use
  Company Number: US-B.I. PHARMACEUTICALS,INC./RIDGEFIELD-2012-BP-11124BP

PATIENT
  Sex: Female
  Weight: 64 kg

DRUGS (10)
  1. PRADAXA [Suspect]
     Indication: CEREBROVASCULAR ACCIDENT PROPHYLAXIS
     Dosage: 300 MG
     Route: 048
     Dates: start: 20120424, end: 20120501
  2. FOSAMAX [Concomitant]
     Indication: OSTEOPOROSIS
  3. LISINOPRIL [Concomitant]
     Indication: HYPERTENSION
  4. SIMVASTATIN [Concomitant]
     Indication: BLOOD CHOLESTEROL INCREASED
  5. PRADAXA [Suspect]
     Indication: ATRIAL FIBRILLATION
  6. METFORMIN HCL [Concomitant]
  7. AMIODARONE HCL [Concomitant]
  8. METOPROLOL [Concomitant]
  9. SYNTHROID [Concomitant]
  10. PROVENTIL [Concomitant]

REACTIONS (4)
  - DIZZINESS [None]
  - LUNG DISORDER [None]
  - GAIT DISTURBANCE [None]
  - ASTHENIA [None]
